FAERS Safety Report 7581232-0 (Version None)
Quarter: 2011Q2

REPORT INFORMATION
  Report Type: 
  Country: None (occurrence: None)
  Receive Date: 20110629
  Receipt Date: 20110622
  Transmission Date: 20111010
  Serious: Yes (Death, Life-Threatening, Hospitalization, Disabling)
  Sender: FDA-Public Use
  Company Number: US-JNJFOC-20110604364

PATIENT
  Sex: Male
  Weight: 83.2 kg

DRUGS (20)
  1. NORVASC [Concomitant]
     Route: 048
     Dates: start: 20110418
  2. WARFARIN SODIUM [Concomitant]
     Indication: ATRIAL FIBRILLATION
     Route: 048
  3. NORVASC [Concomitant]
     Indication: HYPERTENSION
     Route: 048
     Dates: start: 20110305
  4. OTHER DRUGS USED IN BENIGN PROSTATIC HYPERTR. [Concomitant]
     Indication: MEDICAL DIET
     Route: 058
  5. ATENOLOL [Concomitant]
     Indication: HYPERTENSION
     Route: 048
  6. OS.CAL [Concomitant]
     Indication: MEDICAL DIET
     Route: 048
  7. ENBREL [Concomitant]
     Indication: RHEUMATOID ARTHRITIS
     Route: 058
     Dates: start: 20100619
  8. GOLIMUMAB [Suspect]
     Indication: RHEUMATOID ARTHRITIS
     Route: 058
     Dates: start: 20101228
  9. GOLIMUMAB [Suspect]
     Route: 058
     Dates: start: 20110510
  10. RANITIDINE [Concomitant]
     Indication: GASTROOESOPHAGEAL REFLUX DISEASE
     Route: 048
  11. GLUCOSAMINE [Concomitant]
     Indication: MEDICAL DIET
     Route: 048
  12. SULFASALAZINE [Concomitant]
     Indication: RHEUMATOID ARTHRITIS
     Route: 058
  13. PERCOCET [Concomitant]
     Route: 048
     Dates: start: 20110418
  14. FOLIC ACID [Concomitant]
     Indication: MEDICAL DIET
     Route: 048
     Dates: start: 20000612
  15. METHOTREXATE [Concomitant]
     Indication: RHEUMATOID ARTHRITIS
     Route: 058
     Dates: start: 20000612
  16. COLACE [Concomitant]
     Route: 048
     Dates: start: 20110418
  17. ASCORBIC ACID [Concomitant]
     Indication: MEDICAL DIET
     Route: 048
  18. WARFARIN SODIUM [Concomitant]
     Route: 048
  19. DIOVAN [Concomitant]
     Indication: HYPERTENSION
     Route: 048
  20. JALYN [Concomitant]
     Indication: BENIGN PROSTATIC HYPERPLASIA
     Route: 058

REACTIONS (1)
  - CEREBRAL HAEMORRHAGE [None]
